FAERS Safety Report 9452907 (Version 2)
Quarter: 2013Q3

REPORT INFORMATION
  Report Type: Report from Study
  Country: CO (occurrence: CO)
  Receive Date: 20130812
  Receipt Date: 20130819
  Transmission Date: 20140515
  Serious: Yes (Hospitalization, Other)
  Sender: FDA-Public Use
  Company Number: CO-ROCHE-1259611

PATIENT
  Age: 49 Year
  Sex: Female

DRUGS (6)
  1. LUCENTIS [Suspect]
     Indication: VISION BLURRED
     Route: 050
     Dates: start: 201302
  2. LUCENTIS [Suspect]
     Route: 050
     Dates: start: 20130516
  3. INSULIN [Concomitant]
  4. AMLODIPINE [Concomitant]
  5. LOSARTAN [Concomitant]
  6. OXYGEN [Concomitant]

REACTIONS (5)
  - Arthralgia [Recovered/Resolved]
  - Headache [Recovered/Resolved]
  - Urinary tract infection [Recovered/Resolved]
  - Blindness unilateral [Recovered/Resolved]
  - Vision blurred [Recovered/Resolved]
